FAERS Safety Report 19647748 (Version 3)
Quarter: 2022Q4

REPORT INFORMATION
  Report Type: Report from Study
  Country: None (occurrence: US)
  Receive Date: 20210802
  Receipt Date: 20221215
  Transmission Date: 20230113
  Serious: Yes (Other)
  Sender: FDA-Public Use
  Company Number: US-AKCEA THERAPEUTICS, INC.-2021IS001593

PATIENT
  Age: 79 Year
  Sex: Female
  Weight: 68.136 kg

DRUGS (21)
  1. TEGSEDI [Suspect]
     Active Substance: INOTERSEN SODIUM
     Indication: Hereditary neuropathic amyloidosis
     Route: 058
     Dates: start: 201807
  2. DEVICE [Suspect]
     Active Substance: DEVICE
  3. TEGSEDI [Suspect]
     Active Substance: INOTERSEN SODIUM
     Route: 058
     Dates: start: 201807
  4. TEGSEDI [Suspect]
     Active Substance: INOTERSEN SODIUM
     Route: 058
     Dates: start: 20181213
  5. TEGSEDI [Suspect]
     Active Substance: INOTERSEN SODIUM
     Route: 058
     Dates: start: 20181221
  6. TEGSEDI [Suspect]
     Active Substance: INOTERSEN SODIUM
     Route: 058
     Dates: start: 20181231
  7. TEGSEDI [Suspect]
     Active Substance: INOTERSEN SODIUM
     Route: 058
  8. PREDNISONE [Concomitant]
     Active Substance: PREDNISONE
     Route: 065
  9. ZITHROMAX [Concomitant]
     Active Substance: AZITHROMYCIN DIHYDRATE
     Route: 065
  10. DILTIAZEM [Concomitant]
     Active Substance: DILTIAZEM
     Route: 065
  11. DOXYLAMINE SUCCINATE [Concomitant]
     Active Substance: DOXYLAMINE SUCCINATE
     Route: 065
  12. PLAVIX [Concomitant]
     Active Substance: CLOPIDOGREL BISULFATE
     Route: 065
  13. PREVACID [Concomitant]
     Active Substance: LANSOPRAZOLE
     Route: 065
  14. ALLOPURINOL [Concomitant]
     Active Substance: ALLOPURINOL
     Route: 065
  15. DIAZEPAM [Concomitant]
     Active Substance: DIAZEPAM
     Route: 065
  16. VITAMIN A [Concomitant]
     Active Substance: VITAMIN A
     Route: 065
  17. LEVOTHYROXINE SODIUM [Concomitant]
     Active Substance: LEVOTHYROXINE SODIUM
     Route: 065
  18. GABAPENTIN [Concomitant]
     Active Substance: GABAPENTIN
     Route: 065
  19. MACROBID [Concomitant]
     Active Substance: NITROFURANTOIN\NITROFURANTOIN MONOHYDRATE
     Route: 065
  20. XANAX [Concomitant]
     Active Substance: ALPRAZOLAM
     Route: 065
  21. TEGSEDI [Suspect]
     Active Substance: INOTERSEN SODIUM
     Route: 058
     Dates: start: 20211231

REACTIONS (31)
  - Lymphocytic leukaemia [Unknown]
  - Diarrhoea [Unknown]
  - Urine abnormality [Unknown]
  - Crystal urine present [Unknown]
  - White blood cells urine positive [Unknown]
  - Illness [Unknown]
  - Urinary occult blood positive [Unknown]
  - Nitrite urine present [Unknown]
  - Red blood cells urine positive [Unknown]
  - Urinary sediment present [Unknown]
  - Urinary tract disorder [Unknown]
  - Heart rate decreased [Unknown]
  - Blood pressure increased [Unknown]
  - Somnolence [Unknown]
  - Blood pressure decreased [Unknown]
  - Pruritus [Unknown]
  - Bacterial test positive [Unknown]
  - Urinary casts [Unknown]
  - Blood creatinine abnormal [Unknown]
  - Urine protein/creatinine ratio increased [Unknown]
  - Glomerular filtration rate decreased [Unknown]
  - Urine leukocyte esterase positive [Unknown]
  - Creatinine urine abnormal [Unknown]
  - Chills [Recovered/Resolved]
  - Arthralgia [Recovered/Resolved]
  - Chills [Recovered/Resolved]
  - Tremor [Unknown]
  - Vein disorder [Unknown]
  - Chills [Unknown]
  - Injection related reaction [Unknown]
  - Protein urine present [Unknown]

NARRATIVE: CASE EVENT DATE: 20220228
